FAERS Safety Report 5876641-1 (Version None)
Quarter: 2008Q3

REPORT INFORMATION
  Report Type: 
  Country: None (occurrence: None)
  Receive Date: 20080910
  Receipt Date: 20080902
  Transmission Date: 20090109
  Serious: Yes (Other)
  Sender: FDA-Public Use
  Company Number: US-BAXTER-2008BH009393

PATIENT
  Age: 57 Year
  Sex: Male

DRUGS (4)
  1. SODIUM CHLORIDE AND POTASSIUM CHLORIDE INJECTIONS IN PLASTIC CONTAINER [Suspect]
     Indication: DEHYDRATION
     Dosage: DOSE UNIT:UNKNOWN
     Route: 042
     Dates: start: 20080818, end: 20080821
  2. PEG-INTRON [Suspect]
     Indication: HEPATITIS C
     Dosage: DOSE UNIT:UNKNOWN
     Route: 058
     Dates: start: 20080709
  3. COPEGUS [Suspect]
     Indication: HEPATITIS C
     Dosage: DOSE UNIT:UNKNOWN
     Route: 048
     Dates: start: 20080709
  4. NARCOTICS [Suspect]
     Indication: DRUG USE FOR UNKNOWN INDICATION
     Dosage: DOSE UNIT:UNKNOWN
     Route: 065
     Dates: start: 20080801

REACTIONS (4)
  - CHEST PAIN [None]
  - DIARRHOEA [None]
  - HEART RATE IRREGULAR [None]
  - OVERDOSE [None]
